FAERS Safety Report 8130300-3 (Version None)
Quarter: 2012Q1

REPORT INFORMATION
  Report Type: 
  Country: None (occurrence: None)
  Receive Date: 20120210
  Receipt Date: 20120207
  Transmission Date: 20120608
  Serious: Yes (Hospitalization)
  Sender: FDA-Public Use
  Company Number: PHHY2012LT007943

PATIENT
  Sex: Male

DRUGS (12)
  1. PENESTER [Concomitant]
     Indication: BENIGN PROSTATIC HYPERPLASIA
     Dosage: UNK UKN, UNK
  2. KETOPROFEN [Concomitant]
     Dosage: 100 MG/ML, UNK
  3. MELOXICAM [Concomitant]
     Dosage: UNK UKN, UNK
  4. CORDARONE [Concomitant]
     Dosage: UNK UKN, UNK
  5. PROPAFENONE HCL [Concomitant]
     Dosage: UNK UKN, UNK
  6. MICARDIS [Concomitant]
     Dosage: UNK UKN, UNK
  7. XALATAN [Concomitant]
     Dosage: UNK UKN, UNK
  8. ZOLEDRONOC ACID [Suspect]
     Route: 042
     Dates: start: 20120125
  9. OMEPRAZOLE [Concomitant]
     Dosage: UNK UKN, UNK
  10. DICLOFENAC SODIUM [Concomitant]
     Dosage: 75 MG, UNK
     Route: 030
  11. ANGIOTENSIN II ANTAGONISTS [Concomitant]
     Dosage: UNK UKN, UNK
  12. FERROUS SULFATE TAB [Concomitant]
     Dosage: UNK UKN, UNK

REACTIONS (18)
  - RESPIRATORY FAILURE [None]
  - ANGIOEDEMA [None]
  - VOMITING [None]
  - LARYNGOSPASM [None]
  - LOCAL SWELLING [None]
  - PNEUMONIA [None]
  - CHEST DISCOMFORT [None]
  - LOCALISED OEDEMA [None]
  - HYPERSENSITIVITY [None]
  - DYSPNOEA [None]
  - DIARRHOEA HAEMORRHAGIC [None]
  - BRONCHOSPASM [None]
  - SWELLING FACE [None]
  - DIARRHOEA [None]
  - FACE OEDEMA [None]
  - PYREXIA [None]
  - WHEEZING [None]
  - ANAPHYLACTIC REACTION [None]
